FAERS Safety Report 5871738-4 (Version None)
Quarter: 2008Q3

REPORT INFORMATION
  Report Type: 
  Country: None (occurrence: None)
  Receive Date: 20080904
  Receipt Date: 20080904
  Transmission Date: 20090109
  Serious: Yes (Other)
  Sender: FDA-Public Use
  Company Number: None

PATIENT
  Sex: Male
  Weight: 90.7194 kg

DRUGS (1)
  1. PAXIL CR [Suspect]
     Indication: ANXIETY
     Dosage: 1 PER DAY
     Dates: start: 20030322, end: 20080904

REACTIONS (4)
  - DEPRESSION [None]
  - DRUG DEPENDENCE [None]
  - FORMICATION [None]
  - QUALITY OF LIFE DECREASED [None]
